FAERS Safety Report 5263349-9 (Version None)
Quarter: 2007Q1

REPORT INFORMATION
  Report Type: 
  Country: None (occurrence: None)
  Receive Date: 20061219
  Receipt Date: 20061102
  Transmission Date: 20070707
  Serious: Yes (Hospitalization)
  Sender: FDA-Public Use
  Company Number: 2006US002488

PATIENT
  Age: 70 Year
  Sex: Male

DRUGS (1)
  1. VESICARE [Suspect]
     Indication: MICTURITION URGENCY
     Dosage: ORAL
     Route: 048

REACTIONS (2)
  - FAECALOMA [None]
  - URINARY RETENTION [None]
